FAERS Safety Report 4865061-4 (Version None)
Quarter: 2005Q4

REPORT INFORMATION
  Report Type: 
  Country: None (occurrence: None)
  Receive Date: 20051223
  Receipt Date: 20050802
  Transmission Date: 20060501
  Serious: Yes (Other)
  Sender: FDA-Public Use
  Company Number: GBWYE878402AUG05

PATIENT
  Sex: Female

DRUGS (2)
  1. ENBREL [Suspect]
     Indication: RHEUMATOID ARTHRITIS
     Route: 058
     Dates: start: 20050501
  2. PREDNISOLONE [Concomitant]
     Dosage: 2.5-5MG FREQUENCY NOT KNOWN

REACTIONS (3)
  - ALOPECIA [None]
  - EYE PAIN [None]
  - VISION BLURRED [None]
